FAERS Safety Report 7601724-5 (Version None)
Quarter: 2011Q2

REPORT INFORMATION
  Report Type: 
  Country: None (occurrence: None)
  Receive Date: 20110630
  Receipt Date: 20110621
  Transmission Date: 20111010
  Serious: Yes (Hospitalization, Other)
  Sender: FDA-Public Use
  Company Number: CIP11000529

PATIENT
  Age: 71 Year
  Sex: Female

DRUGS (8)
  1. ACTONEL [Suspect]
     Dosage: 35 MG REGIMEN UNKNOWN, ORAL
     Route: 048
     Dates: start: 20040517, end: 20061015
  2. KERALAC (UREA) [Concomitant]
  3. LIPITOR [Concomitant]
  4. ACIPHEX [Concomitant]
  5. VYTORIN [Concomitant]
  6. BONIVA [Suspect]
     Dosage: 150 MG ONCE MONTHLY
     Dates: start: 20061015, end: 20100101
  7. NEXIUM [Concomitant]
  8. HYDROCORTONE [Concomitant]

REACTIONS (11)
  - ANAEMIA POSTOPERATIVE [None]
  - ARTHRALGIA [None]
  - JOINT SWELLING [None]
  - FRACTURE DISPLACEMENT [None]
  - GAIT DISTURBANCE [None]
  - FEMUR FRACTURE [None]
  - ARTHRITIS [None]
  - HAEMORRHAGE [None]
  - HYPOKALAEMIA [None]
  - MUSCULOSKELETAL DISORDER [None]
  - PROCEDURAL PAIN [None]
